FAERS Safety Report 4464024-0 (Version None)
Quarter: 2004Q3

REPORT INFORMATION
  Report Type: 
  Country: None (occurrence: None)
  Receive Date: 20040929
  Receipt Date: 20040929
  Transmission Date: 20050211
  Serious: Yes (Other)
  Sender: FDA-Public Use
  Company Number: None

PATIENT
  Age: 19 Year
  Sex: Male
  Weight: 83.5 kg

DRUGS (3)
  1. QUININE-VARIOUS- [Suspect]
     Indication: MALARIA
     Dosage: 650MG  ONCE  ORAL
     Route: 048
     Dates: start: 20040602, end: 20040602
  2. RANITIDINE HCL [Concomitant]
  3. DOXYCYCLINE [Concomitant]

REACTIONS (2)
  - MEDICATION ERROR [None]
  - RASH [None]
